FAERS Safety Report 15754274 (Version 7)
Quarter: 2020Q4

REPORT INFORMATION
  Report Type: Report from Study
  Country: CN (occurrence: CN)
  Receive Date: 20181223
  Receipt Date: 20201117
  Transmission Date: 20210113
  Serious: Yes (Hospitalization)
  Sender: FDA-Public Use
  Company Number: CN-AMGEN-CHNCT2018181934

PATIENT
  Age: 33 Year
  Sex: Male
  Weight: 56 kg

DRUGS (16)
  1. CEFOPERAZONE SODIUM AND SULBACTAM SODIUM [Concomitant]
     Active Substance: CEFOPERAZONE SODIUM\SULBACTAM SODIUM
     Dosage: 3 GRAM
     Route: 042
     Dates: start: 20181213, end: 20190130
  2. VITAMIN B2 [Concomitant]
     Active Substance: RIBOFLAVIN
     Dosage: 10 MILLIGRAM
     Route: 048
     Dates: start: 20181214, end: 20190130
  3. BLINATUMOMAB [Suspect]
     Active Substance: BLINATUMOMAB
     Indication: B PRECURSOR TYPE ACUTE LEUKAEMIA
     Dosage: UNK MICROGRAM, QD
     Route: 042
     Dates: start: 20181217
  4. BLINATUMOMAB [Suspect]
     Active Substance: BLINATUMOMAB
     Dosage: UNK
     Route: 042
     Dates: start: 20181228
  5. VITAMIN B6 [Concomitant]
     Active Substance: PYRIDOXINE HYDROCHLORIDE
     Dosage: 200 MILLIGRAM
     Route: 042
     Dates: start: 20181213, end: 20190130
  6. DEXAMETHASONE. [Concomitant]
     Active Substance: DEXAMETHASONE
     Dosage: 3-20 MILLIGRAM
     Dates: start: 20181217, end: 20190101
  7. COMPOUND SODIUM CHLORIDE [HYETELLOSE;POTASSIUM CHLORIDE;SODIUM CHLORID [Concomitant]
     Dosage: 500 MILLILITER
     Route: 042
     Dates: start: 20181217, end: 20181230
  8. LORATADINE. [Concomitant]
     Active Substance: LORATADINE
     Dosage: 10 MILLIGRAM
     Route: 048
     Dates: start: 20181215, end: 20181224
  9. LIDOCAINE. [Concomitant]
     Active Substance: LIDOCAINE
     Dosage: 100 MILLIGRAM
     Route: 058
     Dates: start: 20181214, end: 20181214
  10. POTASSIUM CHLORIDE. [Concomitant]
     Active Substance: POTASSIUM CHLORIDE
     Dosage: 10-30 MILLILITER
     Dates: start: 20181213, end: 20190130
  11. AMBROXOL HYDROCHLORIDE [Concomitant]
     Active Substance: AMBROXOL HYDROCHLORIDE
     Dosage: 45 MILLIGRAM
     Route: 042
     Dates: start: 20181216, end: 20181224
  12. ERYTHROMYCIN. [Concomitant]
     Active Substance: ERYTHROMYCIN
     Dosage: 0.1 GRAM
     Route: 050
     Dates: start: 20181215, end: 20181218
  13. VITAMIN C [Concomitant]
     Active Substance: ASCORBIC ACID
     Dosage: 2 GRAM
     Route: 042
     Dates: start: 20181213, end: 20190130
  14. CALCIUM CARBONATE AND VITAMIN D3 [Concomitant]
     Active Substance: CALCIUM CARBONATE\CHOLECALCIFEROL
     Dosage: 600 MILLIGRAM
     Route: 048
     Dates: start: 20181215, end: 20190130
  15. CYTARABINE. [Concomitant]
     Active Substance: CYTARABINE
     Dosage: 50 MILLIGRAM
     Route: 037
     Dates: start: 20181214, end: 20181214
  16. POSACONAZOLE [Concomitant]
     Active Substance: POSACONAZOLE
     Dosage: 5 MILLILITER
     Route: 048
     Dates: start: 20181216, end: 20181225

REACTIONS (1)
  - Liver injury [Recovered/Resolved]

NARRATIVE: CASE EVENT DATE: 20181218
